FAERS Safety Report 15167191 (Version 1)
Quarter: 2018Q3

REPORT INFORMATION
  Report Type: Spontaneous
  Country: US (occurrence: US)
  Receive Date: 20180719
  Receipt Date: 20180719
  Transmission Date: 20181010
  Serious: Yes (Hospitalization, Other)
  Sender: FDA-Public Use
  Company Number: US-COLLEGIUM PHARMACEUTICAL, INC.-2018CGM00244

PATIENT
  Age: 58 Year
  Sex: Female
  Weight: 70.3 kg

DRUGS (10)
  1. XTAMPZA ER [Suspect]
     Active Substance: OXYCODONE
     Indication: BACK PAIN
     Dosage: 13.5 MG, 2X/DAY
     Route: 048
     Dates: start: 2017, end: 201801
  2. DULERA [Concomitant]
     Active Substance: FORMOTEROL FUMARATE DIHYDRATE\MOMETASONE FUROATE
  3. POTASSIUM [Concomitant]
     Active Substance: POTASSIUM
  4. TORSEMIDE. [Concomitant]
     Active Substance: TORSEMIDE
  5. PANTOPRAZOLE [Concomitant]
     Active Substance: PANTOPRAZOLE
  6. THEOPHYLLINE [Concomitant]
     Active Substance: THEOPHYLLINE ANHYDROUS
  7. IVIG INFUSIONS [Concomitant]
  8. METFORMIN [Concomitant]
     Active Substance: METFORMIN HYDROCHLORIDE
  9. SPIRIVA RESPIMAT [Concomitant]
     Active Substance: TIOTROPIUM BROMIDE
  10. XARELTO [Concomitant]
     Active Substance: RIVAROXABAN

REACTIONS (5)
  - Abdominal pain upper [Unknown]
  - Polyp [Recovered/Resolved]
  - Blood count abnormal [Unknown]
  - Gastrointestinal erosion [Recovered/Resolved]
  - Internal haemorrhage [Recovered/Resolved]

NARRATIVE: CASE EVENT DATE: 201805
